FAERS Safety Report 7366760-5 (Version None)
Quarter: 2011Q1

REPORT INFORMATION
  Report Type: 
  Country: None (occurrence: None)
  Receive Date: 20110322
  Receipt Date: 20110307
  Transmission Date: 20110831
  Serious: Yes (Life-Threatening, Hospitalization)
  Sender: FDA-Public Use
  Company Number: FR-PFIZER INC-2011061071

PATIENT
  Age: 85 Year
  Sex: Female

DRUGS (8)
  1. BROMAZEPAM [Concomitant]
  2. TEMESTA [Concomitant]
     Dosage: 1 MG, AT NIGHT
  3. NEXIUM [Concomitant]
     Dosage: 40 MG, DAILY
  4. ATARAX [Suspect]
     Route: 048
  5. DITROPAN [Concomitant]
  6. KLIPAL [Suspect]
     Dosage: 3 UNITS DAILY
     Route: 048
     Dates: start: 20110101, end: 20110210
  7. CARBIMAZOLE [Concomitant]
     Dosage: 10 MG, DAILY
     Dates: start: 20080101
  8. SEROPLEX [Concomitant]

REACTIONS (6)
  - CARDIAC FAILURE [None]
  - PNEUMONIA [None]
  - RENAL FAILURE ACUTE [None]
  - ACUTE RESPIRATORY FAILURE [None]
  - HYPERTENSION [None]
  - ACCIDENTAL OVERDOSE [None]
